FAERS Safety Report 15981545 (Version 2)
Quarter: 2019Q2

REPORT INFORMATION
  Report Type: Spontaneous
  Country: IT (occurrence: IT)
  Receive Date: 20190219
  Receipt Date: 20190511
  Transmission Date: 20190711
  Serious: Yes (Hospitalization)
  Sender: FDA-Public Use
  Company Number: IT-TEVA-2019-IT-1013352

PATIENT
  Age: 67 Year
  Sex: Male

DRUGS (3)
  1. FLUIBRON 7,5 MG/ML SOLUZIONE ORALE O DA NEBULIZZARE [Suspect]
     Active Substance: AMBROXOL HYDROCHLORIDE
     Indication: BRONCHITIS
     Route: 055
     Dates: start: 20190123, end: 20190125
  2. BECLOMETASONE DIPROPIONATE [Concomitant]
     Active Substance: BECLOMETHASONE DIPROPIONATE
  3. BECLOMETASONE DIPROPIONATE [Suspect]
     Active Substance: BECLOMETHASONE DIPROPIONATE
     Indication: BRONCHITIS
     Dosage: 1 DOSAGE FORMS DAILY;
     Route: 055
     Dates: start: 20190123, end: 20190125

REACTIONS (4)
  - Pruritus [Recovering/Resolving]
  - Conjunctival hyperaemia [Recovering/Resolving]
  - Urticaria [Recovering/Resolving]
  - Oedema [Recovering/Resolving]

NARRATIVE: CASE EVENT DATE: 20190123
